FAERS Safety Report 4556060-0 (Version None)
Quarter: 2005Q1

REPORT INFORMATION
  Report Type: 
  Country: None (occurrence: None)
  Receive Date: 20050119
  Receipt Date: 20050112
  Transmission Date: 20050727
  Serious: Yes (Hospitalization)
  Sender: FDA-Public Use
  Company Number: ES-GLAXOSMITHKLINE-B0364469A

PATIENT
  Age: 23 Year
  Sex: Female

DRUGS (1)
  1. ZINNAT [Suspect]
     Indication: TOOTH DISORDER
     Route: 065
     Dates: start: 20040924, end: 20040930

REACTIONS (3)
  - IMPETIGO [None]
  - LICHEN PLANUS [None]
  - STAPHYLOCOCCAL INFECTION [None]
